FAERS Safety Report 9572142 (Version 2)
Quarter: 2014Q2

REPORT INFORMATION
  Report Type: Spontaneous
  Country: US (occurrence: US)
  Receive Date: 20131001
  Receipt Date: 20140630
  Transmission Date: 20141212
  Serious: No
  Sender: FDA-Public Use
  Company Number: US-BIOGENIDEC-2013BI067391

PATIENT
  Age: 62 Year
  Sex: Male

DRUGS (7)
  1. TECFIDERA [Suspect]
     Indication: MULTIPLE SCLEROSIS
     Route: 048
     Dates: start: 20130628
  2. LYRICA [Concomitant]
  3. TIZANIDINE [Concomitant]
  4. TAMSULOSIN [Concomitant]
  5. ASPIRIN LOW DOSE [Concomitant]
  6. DOCUSATE SODIUM [Concomitant]
  7. ERYTHROMYCIN [Concomitant]

REACTIONS (3)
  - Headache [Unknown]
  - Muscular weakness [Unknown]
  - Dizziness [Unknown]
